FAERS Safety Report 20105355 (Version 1)
Quarter: 2021Q4

REPORT INFORMATION
  Report Type: Report from Study
  Country: BG (occurrence: BG)
  Receive Date: 20211124
  Receipt Date: 20211124
  Transmission Date: 20220303
  Serious: Yes (Death, Other)
  Sender: FDA-Public Use
  Company Number: BG-ABBVIE-21K-022-4172948-00

PATIENT
  Age: 71 Year
  Sex: Male

DRUGS (2)
  1. CARBIDOPA\LEVODOPA [Suspect]
     Active Substance: CARBIDOPA\LEVODOPA
     Indication: Parkinson^s disease
     Dosage: MD-8,5 ML CR-4,2/4,4 ML/H ED-2,5 ML AT NIGHT CR - 3,2/3,4 ML/H
     Route: 050
     Dates: start: 20180529, end: 20211120
  2. CARBIDOPA\LEVODOPA [Suspect]
     Active Substance: CARBIDOPA\LEVODOPA

REACTIONS (1)
  - Generalised tonic-clonic seizure [Fatal]

NARRATIVE: CASE EVENT DATE: 20211119
